FAERS Safety Report 10264068 (Version 4)
Quarter: 2014Q4

REPORT INFORMATION
  Report Type: Spontaneous
  Country: DE (occurrence: DE)
  Receive Date: 20140627
  Receipt Date: 20141229
  Transmission Date: 20150528
  Serious: Yes (Hospitalization, Other)
  Sender: FDA-Public Use
  Company Number: DE-BIOGENIDEC-2014BI059547

PATIENT
  Age: 49 Year
  Sex: Female

DRUGS (2)
  1. TECFIDERA [Suspect]
     Active Substance: DIMETHYL FUMARATE
     Indication: MULTIPLE SCLEROSIS
     Dates: start: 201403, end: 201406
  2. CIPRALEX [Concomitant]
     Active Substance: ESCITALOPRAM OXALATE

REACTIONS (9)
  - Hypersensitivity [Not Recovered/Not Resolved]
  - Muscle tightness [Unknown]
  - Multiple sclerosis relapse [Unknown]
  - Dysphagia [Unknown]
  - Adverse drug reaction [Unknown]
  - Dizziness [Unknown]
  - Muscle spasms [Unknown]
  - Arthralgia [Unknown]
  - Hypotension [Recovered/Resolved]

NARRATIVE: CASE EVENT DATE: 201406
